FAERS Safety Report 7092500-3 (Version None)
Quarter: 2010Q4

REPORT INFORMATION
  Report Type: 
  Country: None (occurrence: None)
  Receive Date: 20101108
  Receipt Date: 20101108
  Transmission Date: 20110411
  Serious: No
  Sender: FDA-Public Use
  Company Number: None

PATIENT
  Sex: Female
  Weight: 74.3899 kg

DRUGS (2)
  1. PAROXETINE HCL EXTENDED RELEASE [Suspect]
     Indication: ANXIETY
     Dosage: 1 DAILY PO
     Route: 048
     Dates: start: 20080101, end: 20101104
  2. BUPROPION HCL [Concomitant]

REACTIONS (3)
  - BLEPHAROSPASM [None]
  - ILL-DEFINED DISORDER [None]
  - UNDERDOSE [None]
